FAERS Safety Report 16289031 (Version 9)
Quarter: 2019Q4

REPORT INFORMATION
  Report Type: Spontaneous
  Country: JP (occurrence: JP)
  Receive Date: 20190509
  Receipt Date: 20191113
  Transmission Date: 20200122
  Serious: Yes (Hospitalization)
  Sender: FDA-Public Use
  Company Number: JP-AMGEN-JPNSP2019073434

PATIENT
  Age: 47 Year
  Sex: Male
  Weight: 61.2 kg

DRUGS (19)
  1. MAXACALCITOL [Concomitant]
     Active Substance: MAXACALCITOL
     Indication: HYPERPARATHYROIDISM SECONDARY
     Dosage: 7.5 MICROGRAM, 2 TIMES/WK
     Route: 065
     Dates: start: 20181124
  2. PARSABIV [Suspect]
     Active Substance: ETELCALCETIDE HYDROCHLORIDE
     Indication: HYPERPARATHYROIDISM SECONDARY
     Dosage: 5 MILLIGRAM, 3 TIMES/WK (5.0 MG, Q56H)
     Route: 010
     Dates: start: 20190126
  3. NESP [Concomitant]
     Active Substance: DARBEPOETIN ALFA
     Dosage: UNK, QWK (20 MUG, QW)
     Route: 065
     Dates: start: 20190815
  4. MAXACALCITOL [Concomitant]
     Active Substance: MAXACALCITOL
     Dosage: 5 MICROGRAM, QWK
     Route: 065
     Dates: start: 20181129
  5. FOSRENOL [Concomitant]
     Active Substance: LANTHANUM CARBONATE
     Indication: HYPERPHOSPHATAEMIA
     Dosage: 1125 MILLIGRAM, BID (1125 MG, Q12H)
     Route: 048
     Dates: start: 20170912
  6. CILOSTAZOL. [Concomitant]
     Active Substance: CILOSTAZOL
     Dosage: 100 MILLIGRAM, BID
     Route: 048
     Dates: start: 20190505
  7. MAXACALCITOL [Concomitant]
     Active Substance: MAXACALCITOL
     Dosage: 7.5 MICROGRAM, 3 TIMES/WK (7.5 UG, Q56H)
     Route: 065
     Dates: start: 20190207, end: 20190514
  8. MAXACALCITOL [Concomitant]
     Active Substance: MAXACALCITOL
     Dosage: UNK, QWK (7.5 MUG, QW)
     Route: 065
     Dates: start: 20190521, end: 20190604
  9. MAXACALCITOL [Concomitant]
     Active Substance: MAXACALCITOL
     Dosage: 7.5 MICROGRAM, QWK
     Route: 065
     Dates: start: 20190824
  10. MAXACALCITOL [Concomitant]
     Active Substance: MAXACALCITOL
     Dosage: 5 MICROGRAM, 2 TIMES/WK
     Route: 065
     Dates: start: 20190827
  11. CILOSTAZOL. [Concomitant]
     Active Substance: CILOSTAZOL
     Indication: CEREBRAL INFARCTION
     Dosage: 100 MILLIGRAM, BID
     Route: 048
     Dates: start: 20170616, end: 20190430
  12. P-TOL [SUCROFERRIC OXYHYDROXIDE] [Concomitant]
     Indication: HYPERPHOSPHATAEMIA
     Dosage: 250 MILLIGRAM, Q12H
     Route: 048
     Dates: start: 20190207
  13. NESP [Concomitant]
     Active Substance: DARBEPOETIN ALFA
     Dosage: UNK, QWK (30 MUG, QW)
     Route: 065
     Dates: start: 20190530, end: 20190808
  14. MAXACALCITOL [Concomitant]
     Active Substance: MAXACALCITOL
     Dosage: 7.5 UG, Q56H
     Route: 065
     Dates: start: 20190207, end: 20190514
  15. SENNOSIDE [SENNOSIDE A+B CALCIUM] [Concomitant]
     Active Substance: SENNOSIDES A AND B
     Indication: CONSTIPATION
     Dosage: 12 MG, PRN
     Route: 048
     Dates: start: 20190209
  16. NESP [Concomitant]
     Active Substance: DARBEPOETIN ALFA
     Dosage: 20 MICROGRAM, QWK
     Route: 065
     Dates: start: 20190214, end: 20190523
  17. MAXACALCITOL [Concomitant]
     Active Substance: MAXACALCITOL
     Dosage: UNK, 2 TIMES/WK (5.0 MUG, Q84H)
     Route: 065
     Dates: start: 20190516, end: 20190608
  18. RENAGEL [Concomitant]
     Active Substance: SEVELAMER HYDROCHLORIDE
     Indication: HYPERPHOSPHATAEMIA
     Dosage: 1500 MILLIGRAM, Q12H
     Route: 048
     Dates: start: 20051122
  19. MAXACALCITOL [Concomitant]
     Active Substance: MAXACALCITOL
     Dosage: 5 MICROGRAM, 3 TIMES/WK (5.0 MUG, Q56H)
     Route: 065
     Dates: start: 20190611, end: 20190822

REACTIONS (1)
  - Foot fracture [Recovering/Resolving]

NARRATIVE: CASE EVENT DATE: 20190419
